FAERS Safety Report 17792756 (Version 1)
Quarter: 2020Q2

REPORT INFORMATION
  Report Type: Spontaneous
  Country: DE (occurrence: DE)
  Receive Date: 20200515
  Receipt Date: 20200515
  Transmission Date: 20200714
  Serious: Yes (Hospitalization, Other)
  Sender: FDA-Public Use
  Company Number: DE-PFIZER INC-2020191585

PATIENT
  Age: 88 Year
  Sex: Male
  Weight: 86 kg

DRUGS (9)
  1. METOPROLOL. [Concomitant]
     Active Substance: METOPROLOL
     Dosage: 100 MG, 1-0-0-0
  2. NALOXONE HYDROCHLORIDE/TILIDINE HYDROCHLORIDE [Concomitant]
     Active Substance: NALOXONE HYDROCHLORIDE\TILIDINE HYDROCHLORIDE
     Dosage: UNK (4|50 MG, 1-0-1-0)
  3. ACETYLSALICYLIC ACID [Concomitant]
     Active Substance: ASPIRIN
     Dosage: 100 MG, 1-0-0-0
  4. AMLODIPINE BESILATE [Suspect]
     Active Substance: AMLODIPINE BESYLATE
     Dosage: 5 MG, 1X/DAY (1-0-0-0)
  5. TORASEMID [Concomitant]
     Active Substance: TORSEMIDE
     Dosage: UNK (5 MG, 1-0-0-0)
  6. PREDNISOLON [PREDNISOLONE] [Suspect]
     Active Substance: PREDNISOLONE
     Dosage: 20 MG, 1X/DAY (1-0-0-0)
  7. PANTOPRAZOL [PANTOPRAZOLE] [Concomitant]
     Active Substance: PANTOPRAZOLE
     Dosage: 20 MG, 1-0-1-0
  8. IBUPROFEN. [Suspect]
     Active Substance: IBUPROFEN
     Dosage: 600 MG, 3X/DAY (1-1-1-0)
  9. ARLEVERT [Concomitant]
     Active Substance: CINNARIZINE\DIMENHYDRINATE
     Dosage: UNK (20|40 MG, 1-1-1-0)

REACTIONS (9)
  - Oedema peripheral [Unknown]
  - Decreased appetite [Unknown]
  - General physical health deterioration [Unknown]
  - Glomerular filtration rate decreased [Unknown]
  - Gait disturbance [Unknown]
  - Asthenia [Unknown]
  - Musculoskeletal pain [Unknown]
  - Erythema [Unknown]
  - Gamma-glutamyltransferase increased [Unknown]

NARRATIVE: CASE EVENT DATE: 20191205
